FAERS Safety Report 12861992 (Version 4)
Quarter: 2016Q4

REPORT INFORMATION
  Report Type: Spontaneous
  Country: AU (occurrence: AU)
  Receive Date: 20161019
  Receipt Date: 20161216
  Transmission Date: 20170207
  Serious: Yes (Life-Threatening, Hospitalization, Other)
  Sender: FDA-Public Use
  Company Number: AU-APOTEX-2016AP012844

PATIENT
  Age: 43 Year
  Sex: Male

DRUGS (1)
  1. DICLOFENAC SODIUM. [Suspect]
     Active Substance: DICLOFENAC SODIUM
     Indication: BACK PAIN
     Dosage: FIFTY-SIX 50MG DICLOFENAC TABLETS PER WEEK
     Route: 065

REACTIONS (6)
  - Overdose [Recovered/Resolved]
  - Microcytic anaemia [Unknown]
  - Pain in extremity [Unknown]
  - Renal tubular acidosis [Recovered/Resolved]
  - Hyperchloraemia [Unknown]
  - Hypokalaemia [Recovered/Resolved]

NARRATIVE: CASE EVENT DATE: 201602
